FAERS Safety Report 7360261-6 (Version None)
Quarter: 2011Q1

REPORT INFORMATION
  Report Type: 
  Country: None (occurrence: None)
  Receive Date: 20110318
  Receipt Date: 20110303
  Transmission Date: 20110831
  Serious: Yes (Other)
  Sender: FDA-Public Use
  Company Number: FR-SOLVAY-00211001838

PATIENT
  Age: 18439 Day
  Sex: Female

DRUGS (6)
  1. FUROSEMIDE [Suspect]
     Indication: PRODUCT USED FOR UNKNOWN INDICATION
     Dosage: DAILY DOSE: 20 MILLIGRAM(S)
     Route: 048
     Dates: start: 20080624
  2. COVERSYL [Suspect]
     Dosage: DAILY DOSE: 8 MILLIGRAM(S)
     Route: 048
     Dates: start: 20080901, end: 20100601
  3. COVERSYL [Suspect]
     Indication: HYPERTENSION
     Dosage: DAILY DOSE:  UNKNOWN
     Route: 048
     Dates: end: 20080601
  4. COVERSYL [Suspect]
     Dosage: DAILY DOSE: 4 MILLIGRAM(S)
     Route: 048
     Dates: start: 20080601, end: 20080901
  5. COVERSYL [Suspect]
     Dosage: DAILY DOSE: 10 MILLIGRAM(S)
     Route: 065
     Dates: start: 20100601
  6. MEDIATOR 150 MG [Suspect]
     Indication: TYPE 2 DIABETES MELLITUS
     Dosage: DAILY DOSE: 450 MILLIGRAM(S), FORM: COATED TABLET
     Route: 048
     Dates: start: 20070801, end: 20091201

REACTIONS (2)
  - MITRAL VALVE DISEASE [None]
  - AORTIC VALVE DISEASE [None]
